FAERS Safety Report 4732394-1 (Version None)
Quarter: 2005Q3

REPORT INFORMATION
  Report Type: 
  Country: None (occurrence: None)
  Receive Date: 20050803
  Receipt Date: 20050124
  Transmission Date: 20060218
  Serious: Yes (Hospitalization, Disabling, Other)
  Sender: FDA-Public Use
  Company Number: PHHO2005JP01605

PATIENT
  Age: 69 Year
  Sex: Male

DRUGS (5)
  1. DIOVAN [Suspect]
     Indication: HYPERTENSION
     Dosage: 20 MG, QD
     Route: 048
     Dates: start: 20030709, end: 20040107
  2. DIOVAN [Suspect]
     Dosage: 40 MG, QD
     Route: 048
     Dates: start: 20040108
  3. CONIEL [Suspect]
     Indication: HYPERTENSION
     Dosage: 4 MG, QD
     Route: 048
     Dates: start: 20010629, end: 20040601
  4. CONIEL [Suspect]
     Dosage: 2 MG, QD
     Route: 048
     Dates: start: 20040602
  5. BEZATOL - SLOW RELEASE [Suspect]
     Indication: HYPERCHOLESTEROLAEMIA
     Dosage: 400 MG, QD
     Route: 048
     Dates: start: 20031001

REACTIONS (1)
  - HYPOTHYROIDISM [None]
